FAERS Safety Report 23326589 (Version 1)
Quarter: 2023Q4

REPORT INFORMATION
  Report Type: Spontaneous
  Country: FR (occurrence: FR)
  Receive Date: 20231221
  Receipt Date: 20231221
  Transmission Date: 20240110
  Serious: No
  Sender: FDA-Public Use
  Company Number: FR-PHARMAMAR-2023PM000440

PATIENT

DRUGS (8)
  1. ZEPZELCA [Suspect]
     Active Substance: LURBINECTEDIN
     Indication: Small cell lung cancer
     Dosage: 6.3 MILLIGRAM
     Dates: start: 20230215
  2. ZEPZELCA [Suspect]
     Active Substance: LURBINECTEDIN
     Dosage: 6.3 MILLIGRAM
     Dates: start: 20230309
  3. ZEPZELCA [Suspect]
     Active Substance: LURBINECTEDIN
     Dosage: 5.15 MILLIGRAM
     Dates: start: 20230419
  4. ZEPZELCA [Suspect]
     Active Substance: LURBINECTEDIN
     Dosage: 3.95 MILLIGRAM
     Dates: start: 20230510
  5. ZEPZELCA [Suspect]
     Active Substance: LURBINECTEDIN
     Dosage: 3.95 MILLIGRAM
     Dates: start: 20230531
  6. ZEPZELCA [Suspect]
     Active Substance: LURBINECTEDIN
     Dosage: 3.95 MILLIGRAM
     Dates: start: 20230621
  7. IRBESARTAN [Concomitant]
     Active Substance: IRBESARTAN
  8. ZOLPIDEM [Concomitant]
     Active Substance: ZOLPIDEM TARTRATE

REACTIONS (1)
  - Dyspnoea exertional [Not Recovered/Not Resolved]

NARRATIVE: CASE EVENT DATE: 20230419
